FAERS Safety Report 15110183 (Version 1)
Quarter: 2018Q3

REPORT INFORMATION
  Report Type: Spontaneous
  Country: GB (occurrence: GB)
  Receive Date: 20180705
  Receipt Date: 20180705
  Transmission Date: 20181010
  Serious: Yes (Hospitalization, Disabling, Other)
  Sender: FDA-Public Use
  Company Number: GB-DRREDDYS-GER/UKI/18/0101127

PATIENT
  Age: 54 Year
  Sex: Female
  Weight: 76.2 kg

DRUGS (3)
  1. DONEPEZIL. [Suspect]
     Active Substance: DONEPEZIL
     Indication: EARLY ONSET FAMILIAL ALZHEIMER^S DISEASE
     Dosage: INTIALLY 5MG INCREASED TO 10MG WITHIN 2 WEEKS
     Route: 048
     Dates: start: 20160810
  2. TAMOXIFEN CITRATE. [Concomitant]
     Active Substance: TAMOXIFEN CITRATE
     Indication: PRODUCT USED FOR UNKNOWN INDICATION
  3. DONEPEZIL. [Suspect]
     Active Substance: DONEPEZIL
     Indication: EARLY ONSET FAMILIAL ALZHEIMER^S DISEASE
     Route: 048
     Dates: end: 20160915

REACTIONS (3)
  - Brain injury [Not Recovered/Not Resolved]
  - Speech disorder [Not Recovered/Not Resolved]
  - Generalised tonic-clonic seizure [Not Recovered/Not Resolved]

NARRATIVE: CASE EVENT DATE: 20160915
